FAERS Safety Report 19806930 (Version 2)
Quarter: 2021Q4

REPORT INFORMATION
  Report Type: Spontaneous
  Country: GB (occurrence: GB)
  Receive Date: 20210908
  Receipt Date: 20211117
  Transmission Date: 20220303
  Serious: Yes (Hospitalization)
  Sender: FDA-Public Use
  Company Number: GB-MLMSERVICE-20210820-3063794-1

PATIENT
  Age: 73 Year
  Sex: Male
  Weight: 70 kg

DRUGS (16)
  1. LORAZEPAM [Suspect]
     Active Substance: LORAZEPAM
     Indication: Catatonia
     Route: 048
  2. LORAZEPAM [Suspect]
     Active Substance: LORAZEPAM
     Indication: Sedation
     Route: 048
  3. LORAZEPAM [Suspect]
     Active Substance: LORAZEPAM
     Dosage: TITRATED
     Route: 048
  4. LORAZEPAM [Suspect]
     Active Substance: LORAZEPAM
     Dosage: TITRATED TO 6 MG DAILY THEN STOPPED LORAZEPAM.
     Route: 048
  5. LORAZEPAM [Suspect]
     Active Substance: LORAZEPAM
     Dosage: PRE-SCAN
     Route: 048
  6. ZOLPIDEM [Suspect]
     Active Substance: ZOLPIDEM TARTRATE
     Indication: Catatonia
     Dosage: ONCE EVERY NIGHT
     Route: 065
  7. ZOLPIDEM [Suspect]
     Active Substance: ZOLPIDEM TARTRATE
     Dosage: ONCE EVERY NIGHT
     Route: 065
  8. LORAZEPAM [Suspect]
     Active Substance: LORAZEPAM
     Indication: Catatonia
     Dosage: 2 MG INTRAVENOUS THREE TIMES DAILY.
     Route: 042
  9. MIRTAZAPINE [Concomitant]
     Active Substance: MIRTAZAPINE
     Indication: Depression
     Dosage: 15 MG ON (EACH NIGHT)
  10. MIRTAZAPINE [Concomitant]
     Active Substance: MIRTAZAPINE
     Dosage: 45 MG ON (EACH NIGHT)
  11. SERTRALINE [Concomitant]
     Active Substance: SERTRALINE HYDROCHLORIDE
     Indication: Depression
  12. SERTRALINE [Concomitant]
     Active Substance: SERTRALINE HYDROCHLORIDE
  13. SERTRALINE [Concomitant]
     Active Substance: SERTRALINE HYDROCHLORIDE
  14. SERTRALINE [Concomitant]
     Active Substance: SERTRALINE HYDROCHLORIDE
  15. RISPERIDONE [Concomitant]
     Active Substance: RISPERIDONE
     Indication: Depression
  16. RISPERIDONE [Concomitant]
     Active Substance: RISPERIDONE

REACTIONS (4)
  - Pneumonia aspiration [Recovered/Resolved]
  - Fall [Unknown]
  - Sedation [Unknown]
  - Therapy non-responder [Unknown]
